FAERS Safety Report 10532415 (Version 2)
Quarter: 2014Q4

REPORT INFORMATION
  Report Type: Report from Study
  Country: IE (occurrence: IE)
  Receive Date: 20141021
  Receipt Date: 20141021
  Transmission Date: 20150529
  Serious: Yes (Hospitalization)
  Sender: FDA-Public Use
  Company Number: IE-BRISTOL-MYERS SQUIBB COMPANY-21417209

PATIENT
  Age: 53 Year
  Sex: Male
  Weight: 102.3 kg

DRUGS (23)
  1. LANTUS [Concomitant]
     Active Substance: INSULIN GLARGINE
     Dates: start: 20140909, end: 20140909
  2. SENOKOT [Concomitant]
     Active Substance: SENNOSIDES
     Dates: start: 20140825, end: 20140916
  3. NEXIUM [Concomitant]
     Active Substance: ESOMEPRAZOLE MAGNESIUM
     Dates: start: 20140905, end: 20140912
  4. LEVEMIR [Concomitant]
     Active Substance: INSULIN DETEMIR
     Dates: start: 20140911
  5. LACTULOSE. [Concomitant]
     Active Substance: LACTULOSE
     Dates: start: 20140129, end: 20140916
  6. OXYNORM [Concomitant]
     Active Substance: OXYCODONE HYDROCHLORIDE
     Dates: start: 20140129
  7. PARACETAMOL [Concomitant]
     Active Substance: ACETAMINOPHEN
     Dosage: 04SEP-05SEP2014,17SEP2014-17SEP14.
     Dates: start: 20140904
  8. CLEXANE [Concomitant]
     Active Substance: ENOXAPARIN SODIUM
     Dates: start: 20140908, end: 20140911
  9. OXYCONTIN [Concomitant]
     Active Substance: OXYCODONE HYDROCHLORIDE
     Dates: start: 20140129
  10. ROSUVASTATIN [Concomitant]
     Active Substance: ROSUVASTATIN
     Dates: start: 20140904
  11. INSULIN [Concomitant]
     Active Substance: INSULIN NOS
  12. NOVORAPID [Concomitant]
     Active Substance: INSULIN ASPART
     Dates: start: 20140911
  13. TAZOCIN [Concomitant]
     Active Substance: PIPERACILLIN SODIUM\TAZOBACTAM SODIUM
     Dosage: 04SEP2014-10SEP14,17-19SEP2014.
     Dates: start: 20140904, end: 20140919
  14. MOUTHWASH [Concomitant]
     Dates: start: 20140905, end: 20140912
  15. PREDNISOLONE. [Concomitant]
     Active Substance: PREDNISOLONE
     Dosage: 05SEP2014-10SEP:100MG,11SEP-12SEP:80M,13SEP-17SEP:60MG,18-19SEP:100MG,20SEP2014-ONG:80MG
     Dates: start: 20140905
  16. NIVOLUMAB [Suspect]
     Active Substance: NIVOLUMAB
     Indication: COLON CANCER METASTATIC
     Dosage: LAST DOSE ON 28AUG14
     Route: 042
     Dates: start: 20140807
  17. SEPTRIN [Concomitant]
     Active Substance: SULFAMETHOXAZOLE\TRIMETHOPRIM
     Dates: start: 20140905, end: 20140912
  18. PERINDOPRIL ARGININE + AMLODIPINE BESILATE [Concomitant]
     Dates: start: 20140904
  19. IPILIMUMAB [Suspect]
     Active Substance: IPILIMUMAB
     Indication: COLON CANCER METASTATIC
     Dosage: LAST DOSE ON 28AUG14
     Route: 042
     Dates: start: 20140807
  20. INNOHEP [Concomitant]
     Active Substance: TINZAPARIN SODIUM
     Dates: start: 20140904, end: 20140907
  21. APIDRA [Concomitant]
     Active Substance: INSULIN GLULISINE
     Dates: start: 20140909, end: 20140909
  22. METOCLOPRAMIDE. [Concomitant]
     Active Substance: METOCLOPRAMIDE
     Dates: start: 20140730, end: 20140916
  23. GENTAMICIN. [Concomitant]
     Active Substance: GENTAMICIN

REACTIONS (2)
  - Diarrhoea [Recovered/Resolved]
  - Escherichia infection [Recovered/Resolved]

NARRATIVE: CASE EVENT DATE: 20140916
